FAERS Safety Report 4592213-3 (Version None)
Quarter: 2005Q1

REPORT INFORMATION
  Report Type: 
  Country: None (occurrence: None)
  Receive Date: 20050228
  Receipt Date: 20050216
  Transmission Date: 20050727
  Serious: Yes (Death, Hospitalization)
  Sender: FDA-Public Use
  Company Number: JP-JNJFOC-20031005966

PATIENT
  Sex: Male

DRUGS (12)
  1. REMICADE [Suspect]
     Route: 041
  2. REMICADE [Suspect]
     Route: 041
  3. REMICADE [Suspect]
     Route: 041
  4. REMICADE [Suspect]
     Route: 041
  5. REMICADE [Suspect]
     Route: 041
  6. REMICADE [Suspect]
     Route: 041
  7. REMICADE [Suspect]
     Route: 041
  8. REMICADE [Suspect]
     Indication: CROHN'S DISEASE
     Route: 041
  9. RHEUMATREX [Concomitant]
  10. IMRAN [Concomitant]
  11. HPN [Concomitant]
  12. FIRSTCIN [Concomitant]

REACTIONS (29)
  - BACILLUS INFECTION [None]
  - BACTERIA URINE IDENTIFIED [None]
  - BACTERIAL INFECTION [None]
  - BLOOD POTASSIUM DECREASED [None]
  - CANDIDIASIS [None]
  - CARDIAC FAILURE [None]
  - CARDIAC FAILURE CONGESTIVE [None]
  - CATHETER RELATED INFECTION [None]
  - CORYNEBACTERIUM INFECTION [None]
  - DEATH [None]
  - DIALYSIS [None]
  - ENTEROCOCCAL INFECTION [None]
  - FUNGUS URINE TEST POSITIVE [None]
  - HAEMOLYTIC ANAEMIA [None]
  - HEPATIC FAILURE [None]
  - JAUNDICE [None]
  - METHICILLIN-RESISTANT STAPHYLOCOCCAL AUREUS TEST POSITIVE [None]
  - MYCOBACTERIUM AVIUM COMPLEX INFECTION [None]
  - PNEUMONIA [None]
  - PSEUDOMONAS INFECTION [None]
  - PULMONARY MYCOSIS [None]
  - PULMONARY OEDEMA [None]
  - PYREXIA [None]
  - RENAL FAILURE [None]
  - SEPSIS [None]
  - SEPTIC EMBOLUS [None]
  - STAPHYLOCOCCAL INFECTION [None]
  - WHITE BLOOD CELL COUNT INCREASED [None]
  - WHOLE BLOOD TRANSFUSION [None]
